FAERS Safety Report 4955451-3 (Version None)
Quarter: 2006Q1

REPORT INFORMATION
  Report Type: 
  Country: None (occurrence: None)
  Receive Date: 20060127
  Receipt Date: 20050617
  Transmission Date: 20060701
  Serious: Yes (Death)
  Sender: FDA-Public Use
  Company Number: 05-06-1070

PATIENT
  Age: 83 Year
  Sex: Female

DRUGS (9)
  1. CLOZAPINE [Suspect]
     Indication: PARKINSON'S DISEASE
     Dosage: 50-112.5MG QD, ORAL
     Route: 048
     Dates: start: 20030805, end: 20050501
  2. PAXIL [Concomitant]
  3. SINEMET [Concomitant]
  4. ACETAMINOPHEN [Concomitant]
  5. ROBITUSSIN (GUAIFENESIN) [Concomitant]
  6. SYNTHROID [Concomitant]
  7. PREMARIN [Concomitant]
  8. ASPIRIN [Concomitant]
  9. COMTAN [Concomitant]

REACTIONS (1)
  - UNEVALUABLE EVENT [None]
